FAERS Safety Report 22092126 (Version 1)
Quarter: 2023Q1

REPORT INFORMATION
  Report Type: Spontaneous
  Country: EG (occurrence: EG)
  Receive Date: 20230314
  Receipt Date: 20230314
  Transmission Date: 20230417
  Serious: Yes (Hospitalization, Other)
  Sender: FDA-Public Use
  Company Number: EG-AMGEN-EGYSP2023039997

PATIENT
  Age: 29 Year
  Sex: Female

DRUGS (13)
  1. DARBEPOETIN ALFA [Suspect]
     Active Substance: DARBEPOETIN ALFA
     Indication: Anaemia
     Dosage: 200 MICROGRAM
     Route: 065
  2. DARBEPOETIN ALFA [Suspect]
     Active Substance: DARBEPOETIN ALFA
     Indication: Off label use
     Dosage: 4.5 MICROGRAM/ KG
     Route: 065
  3. DARBEPOETIN ALFA [Suspect]
     Active Substance: DARBEPOETIN ALFA
     Dosage: 11 WEEKLY
     Route: 065
  4. HUMAN IMMUNOGLOBULIN G [Suspect]
     Active Substance: HUMAN IMMUNOGLOBULIN G
     Indication: Anaemia
     Dosage: 0.4 GRAM/ KG, QD (5 DAY COURSE)
  5. METHYLPREDNISOLONE [Suspect]
     Active Substance: METHYLPREDNISOLONE
     Indication: Anaemia
     Dosage: 1 GRAM, QD
     Route: 065
  6. PREDNISONE [Suspect]
     Active Substance: PREDNISONE
     Indication: Anaemia
     Dosage: 1 MILLIGRAM/ KG, QD
     Route: 065
  7. IRON [Suspect]
     Active Substance: IRON
     Indication: Anaemia
     Dosage: UNK
     Route: 048
  8. VITAMIN B12 [Suspect]
     Active Substance: CYANOCOBALAMIN
     Indication: Anaemia
     Dosage: UNK
     Route: 048
  9. FOLIC ACID [Suspect]
     Active Substance: FOLIC ACID
     Indication: Anaemia
     Dosage: UNK
     Route: 048
  10. VITAMIN K [Concomitant]
     Active Substance: PHYTONADIONE
     Route: 042
  11. HUMAN PLASMA [Concomitant]
     Active Substance: HUMAN PLASMA
  12. RITUXIMAB [Concomitant]
     Active Substance: RITUXIMAB
     Indication: Haemophagocytic lymphohistiocytosis
     Dosage: 375 MILLIGRAM PER METER SQAURE, QWK
  13. RITUXIMAB [Concomitant]
     Active Substance: RITUXIMAB
     Indication: Haemolysis
     Dosage: UNK, QMO
     Route: 065

REACTIONS (8)
  - Pneumonia klebsiella [Unknown]
  - Myelosuppression [Recovering/Resolving]
  - Intravascular haemolysis [Recovering/Resolving]
  - Brain hypoxia [Unknown]
  - Cardiac failure [Unknown]
  - Device related infection [Unknown]
  - Treatment failure [Unknown]
  - Off label use [Unknown]
